FAERS Safety Report 19114727 (Version 3)
Quarter: 2021Q2

REPORT INFORMATION
  Report Type: Spontaneous
  Country: US (occurrence: US)
  Receive Date: 20210409
  Receipt Date: 20210617
  Transmission Date: 20210717
  Serious: Yes (Other)
  Sender: FDA-Public Use
  Company Number: US-PFIZER INC-2021373965

PATIENT
  Age: 48 Year
  Sex: Female

DRUGS (1)
  1. XELJANZ XR [Suspect]
     Active Substance: TOFACITINIB CITRATE
     Indication: RHEUMATOID ARTHRITIS
     Dosage: 11 MG, DAILY
     Route: 048
     Dates: start: 202103, end: 20210602

REACTIONS (13)
  - Cystitis [Unknown]
  - Osteoporosis [Unknown]
  - Dry skin [Unknown]
  - Product dose omission issue [Unknown]
  - Contusion [Unknown]
  - Peripheral swelling [Recovered/Resolved]
  - Swelling face [Recovering/Resolving]
  - Pigmentation disorder [Unknown]
  - Joint effusion [Unknown]
  - Inflammation [Unknown]
  - Musculoskeletal stiffness [Unknown]
  - Hypokinesia [Recovered/Resolved]
  - Paralysis [Unknown]

NARRATIVE: CASE EVENT DATE: 2021
